FAERS Safety Report 7746251-X (Version None)
Quarter: 2011Q3

REPORT INFORMATION
  Report Type: 
  Country: None (occurrence: None)
  Receive Date: 20110913
  Receipt Date: 20110909
  Transmission Date: 20111222
  Serious: Yes (Life-Threatening, Hospitalization)
  Sender: FDA-Public Use
  Company Number: GB-MILLENNIUM PHARMACEUTICALS, INC.-2011-04218

PATIENT

DRUGS (3)
  1. DEXAMETHASONE [Suspect]
     Indication: MULTIPLE MYELOMA
     Dosage: 40 MG, CYCLIC
     Route: 048
     Dates: start: 20110823, end: 20110908
  2. DOXORUBICIN HCL [Suspect]
     Indication: MULTIPLE MYELOMA
     Dosage: 19 MG, UNK
     Route: 042
     Dates: start: 20110823, end: 20110826
  3. VELCADE [Suspect]
     Indication: MULTIPLE MYELOMA
     Dosage: 2.7 MG, CYCLIC
     Route: 042
     Dates: start: 20110823, end: 20110902

REACTIONS (1)
  - NEUTROPENIC COLITIS [None]
